FAERS Safety Report 24349688 (Version 1)
Quarter: 2024Q3

REPORT INFORMATION
  Report Type: Report from Study
  Country: NO (occurrence: NO)
  Receive Date: 20240923
  Receipt Date: 20240923
  Transmission Date: 20241016
  Serious: No
  Sender: ROCHE
  Company Number: NO-ROCHE-3495639

PATIENT

DRUGS (1)
  1. TRASTUZUMAB [Suspect]
     Active Substance: TRASTUZUMAB
     Indication: Breast cancer
     Route: 065

REACTIONS (10)
  - Neuropathy peripheral [Unknown]
  - Pain [Unknown]
  - Cognitive disorder [Unknown]
  - Fatigue [Unknown]
  - Sleep disorder [Unknown]
  - Emotional disorder [Unknown]
  - Fear of disease [Unknown]
  - Ill-defined disorder [Unknown]
  - Breast disorder [Unknown]
  - Sexual dysfunction [Unknown]
